FAERS Safety Report 9161337 (Version 1)
Quarter: 2013Q1

REPORT INFORMATION
  Report Type: Spontaneous
  Country: US (occurrence: US)
  Receive Date: 20130313
  Receipt Date: 20130313
  Transmission Date: 20140127
  Serious: No
  Sender: FDA-Public Use
  Company Number: US-009507513-2012SP024013

PATIENT
  Age: 53 Year
  Sex: Male
  Weight: 99.77 kg

DRUGS (9)
  1. CLARITIN [Suspect]
     Indication: HYPERSENSITIVITY
     Dosage: 10 MG, UNKNOWN
     Route: 048
     Dates: start: 20120424, end: 201211
  2. CLARITIN [Suspect]
     Indication: SNEEZING
  3. CLARITIN [Suspect]
     Indication: SEASONAL ALLERGY
  4. CLARITIN [Suspect]
     Indication: SEASONAL ALLERGY
  5. CLARITIN [Suspect]
     Indication: MEDICAL OBSERVATION
  6. QUINAPRIL HYDROCHLORIDE [Concomitant]
     Indication: BLOOD PRESSURE
     Dosage: UNK, UNKNOWN
  7. SYNTHROID [Concomitant]
     Indication: THYROID DISORDER
     Dosage: UNK, UNKNOWN
  8. LECITHIN [Concomitant]
     Indication: PRODUCT USED FOR UNKNOWN INDICATION
     Dosage: UNK, UNKNOWN
  9. CHONDROITIN SULFATE SODIUM (+) GLUCOSAMINE SULFATE [Concomitant]
     Indication: PRODUCT USED FOR UNKNOWN INDICATION
     Dosage: UNK, UNKNOWN

REACTIONS (1)
  - Drug effect decreased [Unknown]
